FAERS Safety Report 25999175 (Version 1)
Quarter: 2025Q4

REPORT INFORMATION
  Report Type: 
  Country: CN (occurrence: CN)
  Receive Date: 20251105
  Receipt Date: 20251105
  Transmission Date: 20260117
  Serious: Yes (Hospitalization)
  Sender: AKESO BIOPHARMA CO., LTD.
  Company Number: CN-Akeso Biopharma Co., Ltd.-2187933

PATIENT
  Age: 44 Year
  Sex: Male
  Weight: 52 kg

DRUGS (2)
  1. PENPULIMAB-KCQX [Suspect]
     Active Substance: PENPULIMAB-KCQX
     Indication: Liposarcoma
     Dates: start: 20250717, end: 20250828
  2. VERZENIO [Suspect]
     Active Substance: ABEMACICLIB
     Dates: start: 20250815, end: 20251009

REACTIONS (3)
  - Vomiting [Recovering/Resolving]
  - Electrolyte imbalance [Recovering/Resolving]
  - Diarrhoea [Recovering/Resolving]

NARRATIVE: CASE EVENT DATE: 20251009
